FAERS Safety Report 8160990-0 (Version None)
Quarter: 2012Q1

REPORT INFORMATION
  Report Type: 
  Country: None (occurrence: None)
  Receive Date: 20120223
  Receipt Date: 20120215
  Transmission Date: 20120608
  Serious: Yes (Hospitalization)
  Sender: FDA-Public Use
  Company Number: FR-BRISTOL-MYERS SQUIBB COMPANY-16069932

PATIENT
  Age: 40 Year
  Sex: Female

DRUGS (1)
  1. BUSPAR [Suspect]
     Route: 048
     Dates: start: 20110809, end: 20110824

REACTIONS (1)
  - ERYTHEMA MULTIFORME [None]
